FAERS Safety Report 21333202 (Version 1)
Quarter: 2022Q3

REPORT INFORMATION
  Report Type: Spontaneous
  Country: CN (occurrence: None)
  Receive Date: 20220914
  Receipt Date: 20220914
  Transmission Date: 20221026
  Serious: Yes (Hospitalization)
  Sender: FDA-Public Use
  Company Number: CN-Merck Healthcare KGaA-9350482

PATIENT
  Age: 58 Year
  Sex: Male
  Weight: 71 kg

DRUGS (1)
  1. GLUCOPHAGE [Suspect]
     Active Substance: METFORMIN HYDROCHLORIDE
     Indication: Diabetes mellitus
     Route: 048
     Dates: start: 20190101, end: 20220830

REACTIONS (1)
  - Vitamin B12 deficiency [Unknown]

NARRATIVE: CASE EVENT DATE: 20220830
